FAERS Safety Report 19675382 (Version 2)
Quarter: 2021Q3

REPORT INFORMATION
  Report Type: Spontaneous
  Country: US (occurrence: US)
  Receive Date: 20210809
  Receipt Date: 20210827
  Transmission Date: 20211014
  Serious: Yes (Hospitalization, Other)
  Sender: FDA-Public Use
  Company Number: US-LUPIN PHARMACEUTICALS INC.-2021-14155

PATIENT
  Age: 98 Year
  Sex: Female

DRUGS (11)
  1. BUPIVACAINE. [Suspect]
     Active Substance: BUPIVACAINE
     Indication: PUDENDAL BLOCK
  2. BENZOCAINE. [Suspect]
     Active Substance: BENZOCAINE
     Indication: CANCER PAIN
     Dosage: UNK
     Route: 061
  3. HYDROCODONE AND ACETAMINOPHEN [Suspect]
     Active Substance: ACETAMINOPHEN\HYDROCODONE
     Indication: CANCER PAIN
     Dosage: UNK
     Route: 065
  4. BUPIVACAINE. [Suspect]
     Active Substance: BUPIVACAINE
     Indication: CANCER PAIN
     Dosage: UNK
     Route: 065
  5. LIDOCAINE. [Concomitant]
     Active Substance: LIDOCAINE
     Indication: CANCER PAIN
     Dosage: UNK, APPLIED TO PERINEUM EVERY ONE TO TWO HOURS.
     Route: 061
     Dates: start: 201805
  6. PHENOL. [Concomitant]
     Active Substance: PHENOL
     Indication: NERVE BLOCK
     Dosage: UNK
     Route: 065
  7. OXYCODONE [Suspect]
     Active Substance: OXYCODONE
     Indication: CANCER PAIN
     Dosage: 5 MILLIGRAM, EVERY 4 HOURS
     Route: 048
     Dates: start: 2018, end: 2018
  8. METHYLPREDNISOLONE. [Suspect]
     Active Substance: METHYLPREDNISOLONE
     Indication: CANCER PAIN
     Dosage: 40 MILLIGRAM
     Route: 065
  9. METHYLPREDNISOLONE. [Suspect]
     Active Substance: METHYLPREDNISOLONE
     Indication: PUDENDAL BLOCK
  10. TRAMADOL. [Suspect]
     Active Substance: TRAMADOL
     Indication: CANCER PAIN
     Dosage: UNK
     Route: 065
  11. MORPHINE [Suspect]
     Active Substance: MORPHINE
     Indication: CANCER PAIN
     Dosage: 7.5 MILLIGRAM, PRN, EVERY 4 HOURS
     Route: 048
     Dates: start: 2018, end: 2018

REACTIONS (7)
  - Suicide attempt [Unknown]
  - Drug ineffective [Unknown]
  - Somnolence [Unknown]
  - Intentional overdose [Unknown]
  - Hallucination [Unknown]
  - Dyspepsia [Unknown]
  - Disorientation [Unknown]

NARRATIVE: CASE EVENT DATE: 2018
